FAERS Safety Report 9782725 (Version 1)
Quarter: 2013Q4

REPORT INFORMATION
  Report Type: Spontaneous
  Country: US (occurrence: None)
  Receive Date: 20131224
  Receipt Date: 20131224
  Transmission Date: 20140711
  Serious: Yes (Disabling, Other)
  Sender: FDA-Public Use
  Company Number: None

PATIENT
  Age: 81 Year
  Sex: Female
  Weight: 84.82 kg

DRUGS (2)
  1. TAMOXIFEN CITRATE [Suspect]
     Dosage: 1 DOSE  1 X DAY  SWALLOW
     Route: 048
     Dates: start: 20120817, end: 201311
  2. AROMASIN [Suspect]
     Dosage: 1 DOSE  QUIT JULY 2013   SWALLOW
     Route: 048
     Dates: start: 201208

REACTIONS (8)
  - Alopecia [None]
  - Eye pain [None]
  - Epistaxis [None]
  - Dizziness [None]
  - Nausea [None]
  - Pain [None]
  - Memory impairment [None]
  - Alopecia [None]
